FAERS Safety Report 12181407 (Version 3)
Quarter: 2016Q2

REPORT INFORMATION
  Report Type: Report from Study
  Country: KR (occurrence: KR)
  Receive Date: 20160315
  Receipt Date: 20160601
  Transmission Date: 20160815
  Serious: Yes (Hospitalization)
  Sender: FDA-Public Use
  Company Number: KR-JNJFOC-20160306538

PATIENT
  Age: 51 Year
  Sex: Male
  Weight: 67 kg

DRUGS (25)
  1. ESPERSON [Concomitant]
     Indication: PSORIASIS
     Route: 061
     Dates: start: 20140723
  2. BUSCOPAN [Concomitant]
     Active Substance: BUTYLSCOPOLAMINE BROMIDE
     Indication: PANCREATITIS ACUTE
     Route: 030
     Dates: start: 20150610, end: 20150610
  3. STELARA [Suspect]
     Active Substance: USTEKINUMAB
     Indication: PSORIASIS
     Route: 058
     Dates: start: 20150211
  4. LEGALON [Concomitant]
     Active Substance: MILK THISTLE
     Indication: LIVER FUNCTION TEST ABNORMAL
     Route: 048
     Dates: start: 20150618, end: 20150721
  5. PYRIDOXINE [Concomitant]
     Active Substance: PYRIDOXINE
     Indication: LATENT TUBERCULOSIS
     Route: 048
     Dates: start: 20150128, end: 20150610
  6. ULISTIN [Concomitant]
     Active Substance: ULINASTATIN
     Indication: PANCREATITIS ACUTE
     Route: 041
     Dates: start: 20150611, end: 20150615
  7. YUHANZID [Concomitant]
     Active Substance: ISONIAZID
     Route: 048
     Dates: start: 20150618, end: 20150721
  8. POLAPREZINC [Concomitant]
     Active Substance: POLAPREZINC
     Indication: MOUTH ULCERATION
     Route: 048
     Dates: start: 20160215, end: 20160222
  9. FOIPAN [Concomitant]
     Active Substance: CAMOSTAT MESYLATE
     Indication: PANCREATITIS ACUTE
     Route: 048
     Dates: start: 20150616, end: 20150624
  10. STELARA [Suspect]
     Active Substance: USTEKINUMAB
     Indication: PSORIASIS
     Route: 058
     Dates: start: 20150916
  11. NORMAL SALINE [Concomitant]
     Active Substance: SODIUM CHLORIDE
     Indication: PANCREATITIS ACUTE
     Route: 041
     Dates: start: 20150610, end: 20150610
  12. GLUCOSE W/SODIUM CHLORIDE [Concomitant]
     Indication: PANCREATITIS ACUTE
     Route: 041
     Dates: start: 20150611, end: 20150616
  13. CURAN [Concomitant]
     Active Substance: RANITIDINE HYDROCHLORIDE
     Indication: PANCREATITIS ACUTE
     Dosage: 50MG/2ML
     Route: 030
     Dates: start: 20150611, end: 20150615
  14. TIROPA [Concomitant]
     Active Substance: TIROPRAMIDE
     Indication: PANCREATITIS ACUTE
     Route: 048
     Dates: start: 20150616, end: 20150624
  15. PEPTAZOLE [Concomitant]
     Indication: PANCREATITIS ACUTE
     Route: 048
     Dates: start: 20150616, end: 20150624
  16. CEFDINIR. [Concomitant]
     Active Substance: CEFDINIR
     Indication: MOUTH ULCERATION
     Route: 048
     Dates: start: 20160215, end: 20160222
  17. DAIVOBET [Concomitant]
     Active Substance: BETAMETHASONE DIPROPIONATE\CALCIPOTRIENE
     Indication: PSORIASIS
     Route: 061
     Dates: start: 20121009
  18. LEGALON [Concomitant]
     Active Substance: MILK THISTLE
     Indication: LIVER FUNCTION TEST ABNORMAL
     Route: 048
     Dates: start: 20150422, end: 20150610
  19. MACPERAN [Concomitant]
     Active Substance: METOCLOPRAMIDE HYDROCHLORIDE
     Indication: PANCREATITIS ACUTE
     Route: 030
     Dates: start: 20150610, end: 20150610
  20. DICKNOL [Concomitant]
     Indication: PANCREATITIS ACUTE
     Route: 030
     Dates: start: 20150610, end: 20150612
  21. STELARA [Suspect]
     Active Substance: USTEKINUMAB
     Indication: PSORIASIS
     Route: 058
     Dates: start: 20150311
  22. LACTICARE [Concomitant]
     Indication: PSORIASIS
     Route: 065
     Dates: start: 20120924
  23. YUHANZID [Concomitant]
     Active Substance: ISONIAZID
     Route: 048
     Dates: start: 20150128, end: 20150610
  24. STELARA [Suspect]
     Active Substance: USTEKINUMAB
     Indication: PSORIASIS
     Route: 058
     Dates: start: 20150608
  25. TRIDOL [Concomitant]
     Indication: PANCREATITIS ACUTE
     Route: 042
     Dates: start: 20150612, end: 20150614

REACTIONS (1)
  - Squamous cell carcinoma of the tongue [Recovered/Resolved]

NARRATIVE: CASE EVENT DATE: 20160222
